FAERS Safety Report 19055995 (Version 1)
Quarter: 2021Q1

REPORT INFORMATION
  Report Type: Spontaneous
  Country: US (occurrence: US)
  Receive Date: 20210324
  Receipt Date: 20210324
  Transmission Date: 20210420
  Serious: Yes (Other)
  Sender: FDA-Public Use
  Company Number: None

PATIENT
  Age: 53 Year
  Weight: 64.35 kg

DRUGS (1)
  1. JATENZO [Suspect]
     Active Substance: TESTOSTERONE UNDECANOATE
     Indication: HYPOGONADISM MALE
     Route: 048
     Dates: start: 20201005, end: 20201118

REACTIONS (2)
  - Blood testosterone increased [None]
  - Headache [None]

NARRATIVE: CASE EVENT DATE: 20201118
